FAERS Safety Report 7717250-9 (Version None)
Quarter: 2011Q3

REPORT INFORMATION
  Report Type: 
  Country: None (occurrence: None)
  Receive Date: 20110818
  Receipt Date: 20110705
  Transmission Date: 20111222
  Serious: No
  Sender: FDA-Public Use
  Company Number: 1000021945

PATIENT
  Age: 54 Year
  Sex: Female

DRUGS (6)
  1. TRAMADOL HCL [Concomitant]
  2. AMITIZA [Suspect]
     Dates: end: 20110703
  3. VIIBRYD [Suspect]
     Indication: DEPRESSION
     Dosage: 10 MG, ORAL
     Route: 048
     Dates: start: 20110701
  4. NEXIUM [Concomitant]
  5. HYDROCHLOROTHIAZIDE [Concomitant]
  6. HALDOL (HALOPERIDOL) (HALOPERIDOL) [Concomitant]

REACTIONS (4)
  - INSOMNIA [None]
  - ABDOMINAL DISTENSION [None]
  - APPETITE DISORDER [None]
  - WEIGHT INCREASED [None]
